FAERS Safety Report 6195201-9 (Version None)
Quarter: 2009Q2

REPORT INFORMATION
  Report Type: 
  Country: None (occurrence: None)
  Receive Date: 20090519
  Receipt Date: 20090508
  Transmission Date: 20091009
  Serious: Yes (Hospitalization, Disabling)
  Sender: FDA-Public Use
  Company Number: US-MERCK-0808USA05371

PATIENT
  Age: 57 Year
  Sex: Female

DRUGS (3)
  1. FOSAMAX [Suspect]
     Indication: OSTEOPOROSIS
     Route: 048
     Dates: start: 20020101, end: 20060101
  2. HORMONES (UNSPECIFIED) [Concomitant]
     Route: 065
     Dates: start: 19830101
  3. [THERAPY UNSPECIFIED] [Concomitant]
     Indication: HYPERTENSION
     Route: 065
     Dates: start: 19950101

REACTIONS (20)
  - ADHESION [None]
  - ARTHROPATHY [None]
  - BACK PAIN [None]
  - BONE DISORDER [None]
  - BONE LESION [None]
  - DENTAL CARIES [None]
  - HYPOAESTHESIA FACIAL [None]
  - IMPAIRED HEALING [None]
  - INTERVERTEBRAL DISC DISORDER [None]
  - JAW DISORDER [None]
  - JOINT INJURY [None]
  - LIGAMENT RUPTURE [None]
  - OEDEMA MOUTH [None]
  - ORAL INFECTION [None]
  - OSTEOLYSIS [None]
  - PAIN [None]
  - PAIN IN JAW [None]
  - SJOGREN'S SYNDROME [None]
  - SYNOVITIS [None]
  - TRISMUS [None]
